FAERS Safety Report 20746939 (Version 1)
Quarter: 2022Q2

REPORT INFORMATION
  Report Type: Spontaneous
  Country: SE (occurrence: SE)
  Receive Date: 20220425
  Receipt Date: 20220425
  Transmission Date: 20220721
  Serious: Yes (Other)
  Sender: FDA-Public Use
  Company Number: None

PATIENT
  Sex: Male

DRUGS (9)
  1. AMLODIPINE BESYLATE [Suspect]
     Active Substance: AMLODIPINE BESYLATE
     Indication: Essential hypertension
     Dosage: UNK
     Dates: end: 20210422
  2. ETRILECT [Concomitant]
     Dosage: 60 ML, AS NEEDED (15 ML, IF NECESSARY, NOT MORE THAN 60 ML/DAY)
     Dates: start: 20210412
  3. VIAGRA [Concomitant]
     Active Substance: SILDENAFIL CITRATE
     Dosage: 100 MG, AS NEEDED
     Dates: start: 20191112
  4. INVICORP [Concomitant]
     Dosage: 1 DF, AS NEEDED
     Dates: start: 20200304
  5. JANUVIA [Concomitant]
     Active Substance: SITAGLIPTIN PHOSPHATE
     Dosage: UNK
     Dates: start: 20170928
  6. ATORVASTATIN 1A FARMA [Concomitant]
     Dosage: 10 MG, 1X/DAY
     Dates: start: 20201019
  7. CAVERJECTDUAL [Concomitant]
     Dosage: 1 DF, AS NEEDED
     Dates: start: 20190520
  8. EZETIMIBE [Concomitant]
     Active Substance: EZETIMIBE
     Dosage: 10 MG, 1X/DAY
     Dates: start: 20170928
  9. CANDESARTAN [Concomitant]
     Active Substance: CANDESARTAN
     Dosage: 1 DF, 1X/DAY
     Dates: start: 20210412

REACTIONS (1)
  - Erectile dysfunction [Not Recovered/Not Resolved]
